FAERS Safety Report 6343324-3 (Version None)
Quarter: 2009Q3

REPORT INFORMATION
  Report Type: 
  Country: None (occurrence: None)
  Receive Date: 20090908
  Receipt Date: 20090828
  Transmission Date: 20100115
  Serious: Yes (Other)
  Sender: FDA-Public Use
  Company Number: PHEH2008US05098

PATIENT
  Sex: Female

DRUGS (18)
  1. AREDIA [Suspect]
  2. ZOMETA [Suspect]
     Dosage: UNK
     Dates: start: 20010101
  3. FASLODEX [Concomitant]
     Dosage: UNK
  4. METHADONE HCL [Concomitant]
  5. CYMBALTA [Concomitant]
  6. XANAX [Concomitant]
  7. MS CONTIN [Concomitant]
  8. VICODIN [Concomitant]
  9. ELAVIL [Concomitant]
  10. SINGULAIR [Concomitant]
  11. ELMIRON [Concomitant]
  12. VAGIFEM [Concomitant]
  13. FASLODEX [Concomitant]
  14. CENTRUM SILVER [Concomitant]
  15. PROTONIX [Concomitant]
  16. ASCORBIC ACID [Concomitant]
  17. CALCIUM [Concomitant]
  18. OXYCONTIN [Concomitant]

REACTIONS (32)
  - ACCIDENTAL OVERDOSE [None]
  - ANXIETY [None]
  - ARTHRALGIA [None]
  - BACK PAIN [None]
  - BONE DISORDER [None]
  - CARDIAC FAILURE CONGESTIVE [None]
  - CHONDROMALACIA [None]
  - CYSTITIS [None]
  - DEFORMITY [None]
  - DYSPHAGIA [None]
  - EMOTIONAL DISTRESS [None]
  - EYE INFECTION [None]
  - FACIAL BONES FRACTURE [None]
  - FALL [None]
  - HAEMOLYTIC ANAEMIA [None]
  - HAND FRACTURE [None]
  - HIATUS HERNIA [None]
  - INFECTION [None]
  - INJURY [None]
  - JOINT EFFUSION [None]
  - METASTASES TO LIVER [None]
  - METASTASES TO LUNG [None]
  - MOUTH ULCERATION [None]
  - OSTEOARTHRITIS [None]
  - OSTEONECROSIS [None]
  - PAIN [None]
  - PAIN IN EXTREMITY [None]
  - PAIN IN JAW [None]
  - PULMONARY OEDEMA [None]
  - RESPIRATORY DISTRESS [None]
  - SYNOVIAL CYST [None]
  - TONGUE ULCERATION [None]
